FAERS Safety Report 23039205 (Version 1)
Quarter: 2023Q4

REPORT INFORMATION
  Report Type: Spontaneous
  Country: FR (occurrence: FR)
  Receive Date: 20231006
  Receipt Date: 20231006
  Transmission Date: 20240109
  Serious: Yes (Hospitalization)
  Sender: FDA-Public Use
  Company Number: None

PATIENT
  Age: 22 Year
  Sex: Female
  Weight: 72 kg

DRUGS (2)
  1. RIVOTRIL [Suspect]
     Active Substance: CLONAZEPAM
     Indication: Product used for unknown indication
     Dosage: DROPS. 1 X 20 ML BOTTLE
     Route: 065
     Dates: start: 20230824
  2. CYAMEMAZINE [Suspect]
     Active Substance: CYAMEMAZINE
     Indication: Product used for unknown indication
     Dosage: DRINKABLE. DROPS. 1 X 30 ML BOTTLE (SUPPOSED INGESTED DOSE OF CYAMEMAZINE = 1200 MG OR 18.46 MG/KG)
     Route: 065
     Dates: start: 20230824

REACTIONS (2)
  - Toxicity to various agents [Unknown]
  - Somnolence [Unknown]

NARRATIVE: CASE EVENT DATE: 20230824
